FAERS Safety Report 24710642 (Version 1)
Quarter: 2024Q4

REPORT INFORMATION
  Report Type: Spontaneous
  Country: US (occurrence: US)
  Receive Date: 20241209
  Receipt Date: 20241209
  Transmission Date: 20250115
  Serious: No
  Sender: GREER
  Company Number: US-STALCOR-2024-AER-02652

PATIENT
  Age: 5 Year
  Sex: Male

DRUGS (1)
  1. PALFORZIA [Suspect]
     Active Substance: PEANUT
     Indication: Product used for unknown indication
     Dosage: REACTIVE DOSE PRIOR TO EVENT ONSET
     Route: 048

REACTIONS (1)
  - Vomiting [Unknown]
